FAERS Safety Report 6803375-9 (Version None)
Quarter: 2010Q2

REPORT INFORMATION
  Report Type: 
  Country: None (occurrence: None)
  Receive Date: 20100628
  Receipt Date: 20100617
  Transmission Date: 20101027
  Serious: Yes (Other)
  Sender: FDA-Public Use
  Company Number: AR-PFIZER INC-2010064171

PATIENT
  Age: 61 Year
  Sex: Male
  Weight: 81 kg

DRUGS (1)
  1. XALATAN [Suspect]
     Indication: GLAUCOMA
     Dosage: (1.5 UG EACH EYE), 1X/DAY, EVERY DAY
     Route: 047
     Dates: start: 20100101

REACTIONS (5)
  - DRY SKIN [None]
  - ERYTHEMA [None]
  - HYPERSENSITIVITY [None]
  - PRURITUS [None]
  - SKIN FISSURES [None]
